FAERS Safety Report 24804382 (Version 8)
Quarter: 2025Q1

REPORT INFORMATION
  Report Type: Spontaneous
  Country: GB (occurrence: GB)
  Receive Date: 20250103
  Receipt Date: 20250226
  Transmission Date: 20250409
  Serious: No
  Sender: PFIZER
  Company Number: GB-PFIZER INC-202400334235

PATIENT
  Age: 12 Year
  Sex: Male

DRUGS (1)
  1. GENOTROPIN [Suspect]
     Active Substance: SOMATROPIN
     Indication: Hyperpituitarism
     Dosage: 1.4 MG, DAILY (OD)
     Route: 058
     Dates: start: 20241007

REACTIONS (6)
  - Device mechanical issue [Unknown]
  - Drug dose omission by device [Unknown]
  - Device breakage [Unknown]
  - Device defective [Unknown]
  - Device leakage [Unknown]
  - Off label use [Unknown]

NARRATIVE: CASE EVENT DATE: 20241007
